FAERS Safety Report 10044985 (Version 2)
Quarter: 2014Q2

REPORT INFORMATION
  Report Type: Spontaneous
  Country: NZ (occurrence: NZ)
  Receive Date: 20140328
  Receipt Date: 20140501
  Transmission Date: 20141212
  Serious: Yes (Life-Threatening, Other)
  Sender: FDA-Public Use
  Company Number: PHHY2014NZ037863

PATIENT
  Age: 62 Year
  Sex: Male
  Weight: 86.8 kg

DRUGS (12)
  1. ACLASTA [Suspect]
     Indication: OSTEOPOROSIS
     Dosage: 5 MG, UNK
     Route: 042
     Dates: start: 20110614
  2. ACLASTA [Suspect]
     Dosage: 5 MG, UNK
     Route: 042
     Dates: start: 20121116
  3. ACLASTA [Suspect]
     Dosage: 5 MG, UNK
     Route: 042
     Dates: start: 20131128
  4. ACLASTA [Suspect]
     Dosage: 5 MG, UNK
     Route: 042
     Dates: start: 20131212
  5. CHOLECALCIFEROL [Concomitant]
     Dosage: 1 DF, 50000 IU, MONTHLY
     Dates: start: 20140124
  6. PREDNISONE [Concomitant]
     Indication: POLYMYALGIA RHEUMATICA
     Dosage: 2 DF, 5 MG, MANE
     Dates: start: 20140124
  7. PREDNISONE [Concomitant]
     Dosage: 4 DF, 1 MG, MANE
     Dates: start: 20140124
  8. PREDNISONE [Concomitant]
     Dosage: 2 DF, 5 MG, MANE
     Dates: start: 20140327
  9. AMITRIPTYLINE HYDROCHLORIDE [Concomitant]
     Dosage: 1 DF, NOCTE
     Dates: start: 20140324
  10. LOSEC//OMEPRAZOLE [Concomitant]
     Dosage: 1 DF, BID
     Dates: start: 20140124
  11. CALCIUM CARBONATE [Concomitant]
     Dosage: 1 DF, BID, (EQUIVALENT TO CALCIUM 1 G)
     Dates: start: 20131220
  12. PARACETAMOL [Concomitant]
     Dosage: 2 DF, AS REQUIRED UPTO QID
     Dates: start: 20131128

REACTIONS (10)
  - Apnoea [Recovered/Resolved]
  - Hypotension [Recovering/Resolving]
  - Pallor [Recovering/Resolving]
  - Dizziness [Recovering/Resolving]
  - Respiratory rate increased [Recovering/Resolving]
  - Bradycardia [Recovering/Resolving]
  - Syncope [Recovering/Resolving]
  - Hyperhidrosis [Recovering/Resolving]
  - Inappropriate schedule of drug administration [Unknown]
  - Incorrect dose administered [Unknown]
